FAERS Safety Report 23193444 (Version 3)
Quarter: 2023Q4

REPORT INFORMATION
  Report Type: Spontaneous
  Country: TW (occurrence: TW)
  Receive Date: 20231116
  Receipt Date: 20231206
  Transmission Date: 20240109
  Serious: Yes (Hospitalization, Other)
  Sender: FDA-Public Use
  Company Number: TW-BAUSCH-BL-2023-017035

PATIENT
  Age: 38 Year
  Sex: Female

DRUGS (1)
  1. BRODALUMAB [Suspect]
     Active Substance: BRODALUMAB
     Indication: Psoriasis
     Dosage: THERAPY DURATION: 7 MONTHS 1 DAY
     Route: 058
     Dates: start: 20230222, end: 20230912

REACTIONS (7)
  - Lymphadenopathy [Recovered/Resolved]
  - Dermatitis exfoliative generalised [Recovered/Resolved]
  - Hyperferritinaemia [Recovered/Resolved]
  - Panniculitis [Recovered/Resolved]
  - Cutaneous lymphoma [Recovered/Resolved]
  - Pyrexia [Recovered/Resolved]
  - Influenza [Recovered/Resolved]

NARRATIVE: CASE EVENT DATE: 20230819
